FAERS Safety Report 14117378 (Version 7)
Quarter: 2017Q4

REPORT INFORMATION
  Report Type: Report from Study
  Country: US (occurrence: US)
  Receive Date: 20171023
  Receipt Date: 20171227
  Transmission Date: 20180321
  Serious: Yes (Death, Hospitalization, Other)
  Sender: FDA-Public Use
  Company Number: US-SEATTLE GENETICS-2017SGN02511

PATIENT
  Age: 61 Year
  Sex: Female
  Weight: 139.5 kg

DRUGS (29)
  1. VITAMIN D3 [Concomitant]
     Active Substance: CHOLECALCIFEROL
     Dosage: UNK, QWEEK
     Route: 048
     Dates: start: 20171004
  2. BIOTENE                            /03475601/ [Concomitant]
     Dosage: 15 ML, UNK
     Dates: start: 20171013, end: 20171018
  3. FENTANYL. [Concomitant]
     Active Substance: FENTANYL
     Dosage: 50 UNK, UNK
     Route: 042
     Dates: start: 20171011
  4. KETOROLAC [Concomitant]
     Active Substance: KETOROLAC\KETOROLAC TROMETHAMINE
     Dosage: 30 MG, SINGLE
     Route: 042
     Dates: start: 20171013, end: 20171013
  5. POTASSIUM PHOSPHATE                /00493501/ [Concomitant]
     Active Substance: POTASSIUM PHOSPHATE, DIBASIC
     Dosage: 15 MMOL, SINGLE
     Route: 042
     Dates: start: 20171010, end: 20171010
  6. CEFAZOLIN [Concomitant]
     Active Substance: CEFAZOLIN
     Dosage: 1000 MG, SINGLE
     Route: 042
     Dates: start: 20171011, end: 20171011
  7. DICYCLOMINE                        /00068601/ [Concomitant]
     Active Substance: DICYCLOMINE HYDROCHLORIDE
     Dosage: 20 MG, SINGLE
     Route: 048
     Dates: start: 20171009, end: 20171009
  8. HYDROMORPHONE [Concomitant]
     Active Substance: HYDROMORPHONE
     Dosage: 0.5 UNK, UNK
     Route: 042
     Dates: start: 20171010, end: 20171010
  9. SERTRALINE [Concomitant]
     Active Substance: SERTRALINE HYDROCHLORIDE
     Dosage: 100 MG, QD
     Route: 048
     Dates: start: 20171004, end: 20171018
  10. ASPIRIN EC [Concomitant]
     Active Substance: ASPIRIN
     Dosage: 81 MG, QD
     Route: 048
     Dates: start: 20171013, end: 20171018
  11. MAGNESIUM SULFATE. [Concomitant]
     Active Substance: MAGNESIUM SULFATE
     Dosage: 2000 MG, SINGLE
     Route: 042
     Dates: start: 20171013, end: 20171013
  12. BRENTUXIMAB VEDOTIN [Suspect]
     Active Substance: BRENTUXIMAB VEDOTIN
     Indication: HODGKIN^S DISEASE
     Dosage: 1.8 MG/KG, Q21D
     Route: 042
     Dates: start: 20171003, end: 20171003
  13. LORAZEPAM. [Concomitant]
     Active Substance: LORAZEPAM
     Dosage: UNK, QD
     Route: 048
     Dates: start: 20171010
  14. ONDANSETRON [Concomitant]
     Active Substance: ONDANSETRON
     Dosage: UNK
     Route: 048
     Dates: start: 20171004, end: 20171010
  15. MIDAZOLAM [Concomitant]
     Active Substance: MIDAZOLAM HYDROCHLORIDE
     Dosage: 1 MG/ML, UNK
     Route: 042
     Dates: start: 20171011
  16. METFORMIN [Concomitant]
     Active Substance: METFORMIN HYDROCHLORIDE
     Dosage: UNK, BID
     Route: 048
     Dates: start: 20170913, end: 20171010
  17. POTASSIUM CHLORIDE AND SODIUM CHLORIDE [Concomitant]
     Active Substance: POTASSIUM CHLORIDE\SODIUM CHLORIDE
     Dosage: UNK
     Dates: start: 20171013, end: 20171014
  18. HEPARIN [Concomitant]
     Active Substance: HEPARIN SODIUM
     Dosage: 2 UNK, UNK
     Route: 042
     Dates: start: 20171011
  19. LIDOCAINE W/EPINEPHRINE [Concomitant]
     Active Substance: EPINEPHRINE\LIDOCAINE
     Dosage: 20 ML, SINGLE
     Route: 058
     Dates: start: 20171011, end: 20171011
  20. LOSARTAN. [Concomitant]
     Active Substance: LOSARTAN
     Dosage: UNK, QD
     Route: 048
     Dates: start: 20171010, end: 20171016
  21. PANTOPRAZOLE [Concomitant]
     Active Substance: PANTOPRAZOLE
     Dosage: UNK
     Dates: start: 20171004, end: 20171018
  22. SIMVASTATIN. [Concomitant]
     Active Substance: SIMVASTATIN
     Dosage: 20 MG, QD
     Route: 048
     Dates: start: 20170913, end: 20171004
  23. LIDOCAINE                          /00033402/ [Concomitant]
     Active Substance: LIDOCAINE
     Dosage: 5 ML, UNK
     Route: 042
     Dates: start: 20171011
  24. HYDROMORPHONE [Concomitant]
     Active Substance: HYDROMORPHONE
     Dosage: 0.5 MG, SINGLE
     Route: 042
     Dates: start: 20171011, end: 20171011
  25. SODIUM CHLORIDE BRAUN [Concomitant]
     Active Substance: SODIUM CHLORIDE
     Dosage: 1000 ML, SINGLE
     Route: 042
     Dates: start: 20171009, end: 20171009
  26. NIVOLUMAB [Suspect]
     Active Substance: NIVOLUMAB
     Indication: HODGKIN^S DISEASE
     Dosage: 3 MG/KG, Q21D
     Route: 042
     Dates: start: 20171003, end: 20171003
  27. EMLA [Concomitant]
     Active Substance: LIDOCAINE\PRILOCAINE
     Dosage: UNK
     Route: 061
     Dates: start: 20171010
  28. AMLODIPINE [Concomitant]
     Active Substance: AMLODIPINE BESYLATE
     Dosage: 10 MG, QD
     Route: 048
     Dates: start: 20171013, end: 20171017
  29. ISOVUE 300 [Concomitant]
     Active Substance: IOPAMIDOL
     Dosage: 300 ML, SINGLE
     Route: 048
     Dates: start: 20171013, end: 20171013

REACTIONS (8)
  - Abdominal pain [Not Recovered/Not Resolved]
  - Vomiting [Recovered/Resolved]
  - Electrolyte imbalance [Not Recovered/Not Resolved]
  - Sepsis [Fatal]
  - Nausea [Recovered/Resolved]
  - Neuropathy peripheral [Not Recovered/Not Resolved]
  - Acute kidney injury [Fatal]
  - Myalgia [Not Recovered/Not Resolved]

NARRATIVE: CASE EVENT DATE: 20171014
